FAERS Safety Report 18243274 (Version 4)
Quarter: 2020Q4

REPORT INFORMATION
  Report Type: Spontaneous
  Country: RU (occurrence: RU)
  Receive Date: 20200908
  Receipt Date: 20201001
  Transmission Date: 20210113
  Serious: Yes (Hospitalization, Other)
  Sender: FDA-Public Use
  Company Number: RU-GILEAD-2020-0493387

PATIENT
  Age: 25 Year
  Sex: Female
  Weight: 48 kg

DRUGS (4)
  1. DEXAMETHASONE. [Concomitant]
     Active Substance: DEXAMETHASONE
  2. METYPRED [METHYLPREDNISOLONE] [Concomitant]
     Active Substance: METHYLPREDNISOLONE
     Indication: ANTIPHOSPHOLIPID SYNDROME
     Dosage: 4 MG, QD
     Route: 065
     Dates: start: 201912
  3. ACTOVEGIN [Concomitant]
     Active Substance: BLOOD, BOVINE
     Dosage: 1 UNK
  4. VEMLIDY [Suspect]
     Active Substance: TENOFOVIR ALAFENAMIDE FUMARATE
     Indication: CHRONIC HEPATITIS B
     Dosage: 25 MG, ONCE
     Route: 048
     Dates: start: 20200602

REACTIONS (2)
  - Hepatitis B [Recovered/Resolved]
  - Maternal exposure during pregnancy [Recovered/Resolved]
